FAERS Safety Report 4791062-0 (Version None)
Quarter: 2005Q4

REPORT INFORMATION
  Report Type: 
  Country: None (occurrence: None)
  Receive Date: 20051005
  Receipt Date: 20050920
  Transmission Date: 20060501
  Serious: Yes (Hospitalization)
  Sender: FDA-Public Use
  Company Number: DSA_27131_2005

PATIENT
  Age: 75 Year
  Sex: Female

DRUGS (1)
  1. TAVOR [Suspect]
     Dosage: DF ONCE PO
     Route: 048
     Dates: start: 20050915, end: 20050915

REACTIONS (7)
  - AGITATION [None]
  - COLD SWEAT [None]
  - INTENTIONAL DRUG MISUSE [None]
  - OVERDOSE [None]
  - TACHYCARDIA [None]
  - TREMOR [None]
  - VOMITING [None]
